FAERS Safety Report 7509947-0 (Version None)
Quarter: 2011Q2

REPORT INFORMATION
  Report Type: 
  Country: None (occurrence: None)
  Receive Date: 20110527
  Receipt Date: 20110519
  Transmission Date: 20111010
  Serious: Yes (Other)
  Sender: FDA-Public Use
  Company Number: PHHY2011US43645

PATIENT
  Age: 53 Year
  Sex: Female

DRUGS (1)
  1. SANDOSTATIN LAR [Suspect]
     Dosage: 20 MG
     Dates: start: 20110414

REACTIONS (5)
  - CHEST PAIN [None]
  - STRESS CARDIOMYOPATHY [None]
  - CARDIOMEGALY [None]
  - EJECTION FRACTION DECREASED [None]
  - ASTHENIA [None]
